FAERS Safety Report 4700794-1 (Version None)
Quarter: 2005Q2

REPORT INFORMATION
  Report Type: 
  Country: None (occurrence: None)
  Receive Date: 20050624
  Receipt Date: 20050104
  Transmission Date: 20051028
  Serious: Yes (Disabling)
  Sender: FDA-Public Use
  Company Number: 391595

PATIENT
  Age: 48 Year
  Sex: Female
  Weight: 57.4 kg

DRUGS (2)
  1. XELODA [Suspect]
     Indication: BREAST CANCER
     Dosage: ORAL
     Route: 048
     Dates: start: 20030715, end: 20050125
  2. PAXIL CR [Concomitant]

REACTIONS (1)
  - HERPES SIMPLEX OPHTHALMIC [None]
